FAERS Safety Report 5274335-7 (Version None)
Quarter: 2007Q1

REPORT INFORMATION
  Report Type: 
  Country: None (occurrence: None)
  Receive Date: 20070323
  Receipt Date: 20070315
  Transmission Date: 20070707
  Serious: Yes (Other)
  Sender: FDA-Public Use
  Company Number: US-PFIZER INC-2006098240

PATIENT
  Sex: Female
  Weight: 77.1 kg

DRUGS (7)
  1. BEXTRA [Suspect]
     Indication: ARTHRALGIA
  2. BEXTRA [Suspect]
     Indication: PSORIATIC ARTHROPATHY
  3. CELEBREX [Concomitant]
  4. VIOXX [Concomitant]
  5. DARVOCET [Concomitant]
  6. CODEINE [Concomitant]
  7. ALEVE [Concomitant]

REACTIONS (2)
  - CARDIAC DISORDER [None]
  - STEVENS-JOHNSON SYNDROME [None]
